FAERS Safety Report 4608225-7 (Version None)
Quarter: 2005Q2

REPORT INFORMATION
  Report Type: 
  Country: None (occurrence: None)
  Receive Date: 20050303
  Receipt Date: 20041103
  Transmission Date: 20051028
  Serious: No
  Sender: FDA-Public Use
  Company Number: 702206

PATIENT
  Age: 55 Year
  Sex: Male
  Weight: 90.7194 kg

DRUGS (7)
  1. AMEVIVE [Suspect]
     Indication: PSORIASIS
     Dosage: 15 MG;QW;IM
     Route: 030
     Dates: start: 20031001, end: 20031201
  2. AMEVIVE [Suspect]
     Indication: PSORIASIS
     Dosage: 15 MG;QW;IM
     Route: 030
     Dates: start: 20040518
  3. ASPIRIN [Concomitant]
  4. PLAVIX [Concomitant]
  5. CARDURA [Concomitant]
  6. ALTACE [Concomitant]
  7. METHOTREXATE [Concomitant]

REACTIONS (1)
  - HYPERTRIGLYCERIDAEMIA [None]
